FAERS Safety Report 25010058 (Version 3)
Quarter: 2025Q1

REPORT INFORMATION
  Report Type: Spontaneous
  Country: GB (occurrence: GB)
  Receive Date: 20250225
  Receipt Date: 20250307
  Transmission Date: 20250409
  Serious: Yes (Death, Life-Threatening, Hospitalization, Other)
  Sender: BIOVITRUM
  Company Number: GB-BIOVITRUM-2025-GB-002583

PATIENT
  Age: 24 Month
  Sex: Female

DRUGS (3)
  1. KINERET [Suspect]
     Active Substance: ANAKINRA
     Indication: Haemophagocytic lymphohistiocytosis
     Route: 042
     Dates: start: 20250216
  2. KINERET [Suspect]
     Active Substance: ANAKINRA
     Route: 042
     Dates: start: 20250218
  3. KINERET [Suspect]
     Active Substance: ANAKINRA
     Route: 042
     Dates: start: 20250220, end: 20250221

REACTIONS (5)
  - Distributive shock [Not Recovered/Not Resolved]
  - Haemophagocytic lymphohistiocytosis [Not Recovered/Not Resolved]
  - Condition aggravated [Not Recovered/Not Resolved]
  - Off label use [Recovered/Resolved]
  - Death [Fatal]

NARRATIVE: CASE EVENT DATE: 20250216
